FAERS Safety Report 25800494 (Version 1)
Quarter: 2025Q3

REPORT INFORMATION
  Report Type: Report from Study
  Country: EU (occurrence: EU)
  Receive Date: 20250915
  Receipt Date: 20250915
  Transmission Date: 20251021
  Serious: Yes (Hospitalization)
  Sender: CHIESI
  Company Number: EU-CHIESI PHARMA JAPAN K.K.-AEGR007520

PATIENT
  Sex: Female
  Weight: 59.5 kg

DRUGS (17)
  1. METRELEPTIN [Suspect]
     Active Substance: METRELEPTIN
     Indication: Familial partial lipodystrophy
     Dosage: 5.8 MILLIGRAM, QD
     Dates: start: 20220627
  2. PANTOPRAZOLE [Concomitant]
     Active Substance: PANTOPRAZOLE
     Indication: Product used for unknown indication
     Dosage: 20 MILLIGRAM, QD
  3. GEMFIBROZIL [Concomitant]
     Active Substance: GEMFIBROZIL
     Indication: Product used for unknown indication
     Dosage: 1200 MILLIGRAM, QD
     Dates: start: 20021201, end: 20220901
  4. Multienzyme [Concomitant]
     Indication: Product used for unknown indication
     Dosage: 30000 INTERNATIONAL UNIT, QD
     Dates: start: 20020101
  5. RAMIPRIL [Concomitant]
     Active Substance: RAMIPRIL
     Indication: Product used for unknown indication
     Dosage: 10 MILLIGRAM, QD
     Dates: start: 20020101, end: 20220901
  6. LEVETIRACETAM [Concomitant]
     Active Substance: LEVETIRACETAM
     Indication: Product used for unknown indication
     Dosage: 1 GRAM, QD
     Dates: start: 20191201
  7. BISOPROLOL [Concomitant]
     Active Substance: BISOPROLOL
     Indication: Product used for unknown indication
     Dosage: 1.25 MILLIGRAM, QD
     Dates: start: 20220518
  8. FOLIC ACID [Concomitant]
     Active Substance: FOLIC ACID
     Indication: Product used for unknown indication
     Dosage: 5 MILLIGRAM, QD
  9. PREGABALIN [Concomitant]
     Active Substance: PREGABALIN
     Indication: Product used for unknown indication
     Dosage: 300 MILLIGRAM, BID
  10. CLOPIDOGREL [Concomitant]
     Active Substance: CLOPIDOGREL BISULFATE
     Indication: Product used for unknown indication
     Dosage: 75 MILLIGRAM, QD
     Dates: start: 20220518
  11. CALCIFEDIOL [Concomitant]
     Active Substance: CALCIFEDIOL
     Indication: Product used for unknown indication
     Dosage: 28 MICROGRAM, QD
  12. OMEGA-3 FATTY ACIDS [Concomitant]
     Active Substance: OMEGA-3 FATTY ACIDS
     Indication: Product used for unknown indication
     Dosage: 1.5 GRAM, BID
     Dates: start: 20021201
  13. ALIROCUMAB [Concomitant]
     Active Substance: ALIROCUMAB
     Indication: Product used for unknown indication
     Dosage: 10 MILLIGRAM, EVERY 15 DAYS
     Dates: start: 20190101
  14. FENTANYL [Concomitant]
     Active Substance: FENTANYL
     Indication: Product used for unknown indication
     Dosage: 25 MILLIGRAM, QD
  15. INSULIN LISPRO [Concomitant]
     Active Substance: INSULIN LISPRO
     Indication: Product used for unknown indication
     Dosage: 18 UNITS, 3 TIMES PER DAY
     Dates: start: 19991201
  16. INSULIN GLARGINE [Concomitant]
     Active Substance: INSULIN GLARGINE
     Indication: Product used for unknown indication
     Dosage: 6 INTERNATIONAL UNIT, QD
     Dates: start: 19991201
  17. Sodium iodoheparinate [Concomitant]
     Indication: Product used for unknown indication
     Dosage: 4000 INTERNATIONAL UNIT, QD
     Dates: start: 20220704

REACTIONS (3)
  - Acute kidney injury [Recovered/Resolved]
  - Vertigo [Recovered/Resolved]
  - Rhabdomyolysis [Recovered/Resolved]

NARRATIVE: CASE EVENT DATE: 20220910
